FAERS Safety Report 7552793-2 (Version None)
Quarter: 2011Q2

REPORT INFORMATION
  Report Type: 
  Country: None (occurrence: None)
  Receive Date: 20110616
  Receipt Date: 20110606
  Transmission Date: 20111010
  Serious: Yes (Hospitalization)
  Sender: FDA-Public Use
  Company Number: MY-JNJFOC-20110500429

PATIENT
  Sex: Female
  Weight: 51.5 kg

DRUGS (12)
  1. PALIPERIDONE [Suspect]
     Indication: SCHIZOPHRENIA
     Route: 030
     Dates: start: 20110322
  2. LORAZEPAM [Concomitant]
     Route: 048
     Dates: start: 20110216, end: 20110219
  3. LORAZEPAM [Concomitant]
     Route: 048
     Dates: start: 20110502, end: 20110508
  4. LORAZEPAM [Concomitant]
     Indication: RESTLESSNESS
     Route: 048
  5. LORAZEPAM [Concomitant]
     Route: 048
     Dates: start: 20110216, end: 20110219
  6. LORAZEPAM [Concomitant]
     Route: 048
     Dates: start: 20110502, end: 20110508
  7. PALIPERIDONE [Suspect]
     Route: 030
     Dates: start: 20110425
  8. LORAZEPAM [Concomitant]
     Route: 048
     Dates: start: 20110426, end: 20110430
  9. LORAZEPAM [Concomitant]
     Indication: INSOMNIA
     Route: 048
  10. BENADRYL [Concomitant]
     Indication: UPPER RESPIRATORY TRACT INFECTION
     Dates: start: 20110425, end: 20110428
  11. AMOXICILLIN [Concomitant]
     Indication: UPPER RESPIRATORY TRACT INFECTION
     Dates: start: 20110425, end: 20110428
  12. LORAZEPAM [Concomitant]
     Route: 048
     Dates: start: 20110426, end: 20110430

REACTIONS (1)
  - PSYCHOTIC DISORDER [None]
